FAERS Safety Report 8028268-3 (Version None)
Quarter: 2012Q1

REPORT INFORMATION
  Report Type: 
  Country: None (occurrence: None)
  Receive Date: 20120106
  Receipt Date: 20120104
  Transmission Date: 20120608
  Serious: Yes (Death)
  Sender: FDA-Public Use
  Company Number: US-BRISTOL-MYERS SQUIBB COMPANY-16322927

PATIENT
  Age: 81 Year
  Sex: Female

DRUGS (3)
  1. MEGACE [Concomitant]
     Route: 048
     Dates: start: 20110909
  2. METOPROLOL TARTRATE [Concomitant]
  3. SPRYCEL [Suspect]
     Indication: LYMPHOCYTIC LEUKAEMIA
     Dosage: SPRYCEL TABS 04APR2011
     Route: 048
     Dates: start: 20110214, end: 20111201

REACTIONS (1)
  - ACUTE RESPIRATORY FAILURE [None]
